FAERS Safety Report 6495275-1 (Version None)
Quarter: 2009Q4

REPORT INFORMATION
  Report Type: 
  Country: None (occurrence: None)
  Receive Date: 20091214
  Receipt Date: 20090520
  Transmission Date: 20100525
  Serious: No
  Sender: FDA-Public Use
  Company Number: US-BRISTOL-MYERS SQUIBB COMPANY-14632806

PATIENT
  Age: 19 Year
  Sex: Male

DRUGS (1)
  1. ABILIFY [Suspect]
     Dosage: TAKING:2 WKS.  5MG:MOR+10MG:NIGHT 1DF = (5MG+10MG)/D 10MG:NDC#5914800813,LOT#7M19179A EXP:2010

REACTIONS (1)
  - TREMOR [None]
